FAERS Safety Report 8779565 (Version 4)
Quarter: 2012Q4

REPORT INFORMATION
  Report Type: Report from Study
  Country: US (occurrence: US)
  Receive Date: 20120912
  Receipt Date: 20120925
  Transmission Date: 20130627
  Serious: Yes (Hospitalization)
  Sender: FDA-Public Use
  Company Number: US-EISAI INC-E2080-00507-CLI-US

PATIENT
  Age: 1 Year
  Sex: Female
  Weight: 8.9 kg

DRUGS (20)
  1. E2080 [Suspect]
     Indication: LENNOX-GASTAUT SYNDROME
     Dosage: 1.0 ml (40mg/mL)
     Route: 048
     Dates: start: 20120514, end: 20120516
  2. E2080 [Suspect]
     Dosage: 2.0 ml (40mg/mL)
     Route: 048
     Dates: start: 20120517, end: 20120519
  3. E2080 [Suspect]
     Dosage: 3.5 ml (40mg/mL)
     Route: 048
     Dates: start: 20120520, end: 20120527
  4. E2080 [Suspect]
     Dosage: 4.0 ml (40mg/mL)
     Route: 048
     Dates: start: 20120528, end: 20120604
  5. E2080 [Suspect]
     Dosage: 4.5 ml (40mg/mL)
     Route: 048
     Dates: start: 20120605, end: 20120612
  6. E2080 [Suspect]
     Dosage: 5.0 ml (40mg/mL)
     Route: 048
     Dates: start: 20120613
  7. PRILOSEC [Concomitant]
     Indication: ACID REFLUX (ESOPHAGEAL)
     Dosage: 4 ml once a day
     Route: 048
     Dates: start: 20110630
  8. TOPIRAMATE [Concomitant]
     Indication: EPILEPSY
     Dosage: 3 ml twice daily
     Dates: start: 20120525
  9. VIGABATRIN [Concomitant]
     Indication: EPILEPSY
     Dosage: 500 mg twice daily
     Route: 048
     Dates: start: 20120615
  10. DIASTAT [Concomitant]
     Indication: SEIZURES
     Dosage: 5 mg PRN
     Route: 054
     Dates: start: 201011
  11. VERSED [Concomitant]
     Indication: SEIZURES
     Dosage: 0.4 ml PRN inhalation
     Dates: start: 20120517
  12. ALBUTEROL [Concomitant]
     Indication: RESPIRATORY TRACT CONGESTION
     Dosage: 2.5mg/3ml  every 4 hours
     Dates: start: 20120618, end: 20120704
  13. ALBUTEROL [Concomitant]
     Indication: NASAL CONGESTION
     Dosage: 1vial 3-4 times daily
     Dates: start: 20120802
  14. IBUPROFEN [Concomitant]
     Indication: PAIN NOS
     Dosage: 4 ML PRN
     Route: 048
     Dates: start: 201011
  15. TYLENOL [Concomitant]
     Indication: FEVER
     Dosage: 4 ML PRN
     Route: 048
     Dates: start: 201011
  16. GAS DROPS [Concomitant]
     Indication: GAS PAIN
     Dosage: 3ml PRN
     Route: 048
     Dates: start: 201011
  17. BENEDRYL [Concomitant]
     Indication: RESPIRATORY TRACT CONGESTION
     Dosage: 5 ml twice daily
     Route: 048
     Dates: start: 20120629, end: 20120705
  18. PULMICOURT NEBULIZER [Concomitant]
     Indication: NASAL CONGESTION
     Dosage: 0.25 mg Inhalation
     Dates: start: 20120802
  19. CETRIZINE [Concomitant]
     Indication: NASAL CONGESTION
     Route: 048
     Dates: start: 20120822
  20. ONFI [Concomitant]
     Indication: EPILEPSY
     Dosage: 5mg twice daily
     Route: 048
     Dates: start: 20120717

REACTIONS (3)
  - Pneumonia aspiration [Recovered/Resolved]
  - Bronchitis [Recovered/Resolved]
  - Vomiting [None]
